FAERS Safety Report 15116887 (Version 4)
Quarter: 2018Q3

REPORT INFORMATION
  Report Type: Spontaneous
  Country: IE (occurrence: IE)
  Receive Date: 20180706
  Receipt Date: 20180821
  Transmission Date: 20181010
  Serious: Yes (Hospitalization, Other)
  Sender: FDA-Public Use
  Company Number: IE-ELI_LILLY_AND_COMPANY-IE201806011886

PATIENT
  Age: 21 Year
  Sex: Female

DRUGS (11)
  1. PROZAC [Suspect]
     Active Substance: FLUOXETINE HYDROCHLORIDE
     Indication: OBSESSIVE-COMPULSIVE SYMPTOM
     Dosage: 15 MG, UNKNOWN
     Route: 048
     Dates: start: 20180324, end: 20180327
  2. SEROPIA [Concomitant]
     Indication: DEPRESSION
     Dosage: 25 MG, DAILY
     Route: 065
     Dates: start: 201803, end: 20180409
  3. PROZAC [Suspect]
     Active Substance: FLUOXETINE HYDROCHLORIDE
     Dosage: 20 MG, UNKNOWN
     Route: 048
     Dates: start: 20180416, end: 20180501
  4. PROZAC [Suspect]
     Active Substance: FLUOXETINE HYDROCHLORIDE
     Indication: DEPRESSION
     Dosage: 20 MG, UNKNOWN
     Route: 048
     Dates: start: 201803, end: 20180324
  5. MINULET [Concomitant]
     Active Substance: ETHINYL ESTRADIOL\GESTODENE
     Dosage: 75 UG, UNKNOWN
     Route: 065
  6. PROZAC [Suspect]
     Active Substance: FLUOXETINE HYDROCHLORIDE
     Dosage: 20 MG, UNKNOWN
     Route: 048
     Dates: start: 20180327, end: 20180412
  7. DIXARIT [Concomitant]
     Active Substance: CLONIDINE HYDROCHLORIDE
     Indication: PRODUCT USED FOR UNKNOWN INDICATION
     Dosage: UNK, UNKNOWN
     Route: 065
  8. PROZAC [Suspect]
     Active Substance: FLUOXETINE HYDROCHLORIDE
     Indication: ANXIETY
     Dosage: 10 MG, DAILY
     Route: 048
     Dates: end: 201803
  9. PROZAC [Suspect]
     Active Substance: FLUOXETINE HYDROCHLORIDE
     Dosage: 30 MG, UNKNOWN
     Route: 048
     Dates: start: 20180412, end: 20180416
  10. MINULET [Concomitant]
     Active Substance: ETHINYL ESTRADIOL\GESTODENE
     Indication: PRODUCT USED FOR UNKNOWN INDICATION
     Dosage: 30 UG, UNKNOWN
     Route: 065
  11. QUETIAPINE. [Concomitant]
     Active Substance: QUETIAPINE
     Indication: PRODUCT USED FOR UNKNOWN INDICATION
     Dosage: UNK, UNKNOWN
     Route: 065

REACTIONS (23)
  - Aphasia [Recovering/Resolving]
  - Peripheral coldness [Recovering/Resolving]
  - Bruxism [Not Recovered/Not Resolved]
  - Gait disturbance [Recovering/Resolving]
  - Hyperacusis [Not Recovered/Not Resolved]
  - Musculoskeletal stiffness [Recovering/Resolving]
  - Tinnitus [Recovering/Resolving]
  - Vomiting [Recovering/Resolving]
  - Chest pain [Recovering/Resolving]
  - Bradykinesia [Recovering/Resolving]
  - Compulsive handwashing [Recovering/Resolving]
  - Decreased appetite [Recovering/Resolving]
  - Serotonin syndrome [Recovering/Resolving]
  - Muscle spasms [Recovering/Resolving]
  - Speech disorder [Recovering/Resolving]
  - Oral disorder [Recovering/Resolving]
  - Slow speech [Not Recovered/Not Resolved]
  - Mydriasis [Recovering/Resolving]
  - Hyperhidrosis [Recovering/Resolving]
  - Gait inability [Recovering/Resolving]
  - Blood pressure fluctuation [Recovering/Resolving]
  - Salivary hypersecretion [Recovering/Resolving]
  - Cough [Recovering/Resolving]

NARRATIVE: CASE EVENT DATE: 201802
